FAERS Safety Report 7012256-X (Version None)
Quarter: 2010Q3

REPORT INFORMATION
  Report Type: 
  Country: None (occurrence: None)
  Receive Date: 20100910
  Receipt Date: 20090910
  Transmission Date: 20110219
  Serious: Yes (Other)
  Sender: FDA-Public Use
  Company Number: 1000008787

PATIENT

DRUGS (2)
  1. CITALOPRAM HYDROBROMIDE [Suspect]
  2. ULTRAM [Suspect]

REACTIONS (1)
  - CONVULSION [None]
